FAERS Safety Report 8513385-1 (Version None)
Quarter: 2012Q3

REPORT INFORMATION
  Report Type: 
  Country: None (occurrence: None)
  Receive Date: 20120717
  Receipt Date: 20120712
  Transmission Date: 20120928
  Serious: Yes (Other)
  Sender: FDA-Public Use
  Company Number: US-AMGEN-USASP2012043413

PATIENT
  Age: 74 Year
  Sex: Male

DRUGS (3)
  1. NEUPOGEN [Suspect]
     Indication: MYELODYSPLASTIC SYNDROME
     Dates: start: 20110101
  2. ARANESP [Suspect]
     Indication: MYELODYSPLASTIC SYNDROME
     Route: 042
     Dates: start: 20120601
  3. DACOGEN [Concomitant]

REACTIONS (5)
  - MALAISE [None]
  - LEUKAEMIA [None]
  - BLOOD COUNT ABNORMAL [None]
  - OEDEMA [None]
  - DRUG INEFFECTIVE [None]
